FAERS Safety Report 7637985-6 (Version None)
Quarter: 2011Q3

REPORT INFORMATION
  Report Type: 
  Country: None (occurrence: None)
  Receive Date: 20110720
  Receipt Date: 20110705
  Transmission Date: 20111222
  Serious: No
  Sender: FDA-Public Use
  Company Number: 2011P1007129

PATIENT
  Age: 53 Year
  Sex: Male
  Weight: 95.2554 kg

DRUGS (3)
  1. ANTHELIOS 40 [Suspect]
     Indication: PROPHYLAXIS AGAINST SOLAR RADIATION
     Dosage: X1;TOP
     Route: 061
     Dates: start: 20110608, end: 20110608
  2. XALATAN [Concomitant]
  3. HYDROXYZINE [Suspect]
     Dosage: BID
     Dates: start: 20110601

REACTIONS (6)
  - DERMATITIS CONTACT [None]
  - ECZEMA [None]
  - FATIGUE [None]
  - DECREASED APPETITE [None]
  - SWELLING FACE [None]
  - SCAB [None]
